FAERS Safety Report 9245675 (Version 1)
Quarter: 2013Q2

REPORT INFORMATION
  Report Type: Spontaneous
  Country: CA (occurrence: CA)
  Receive Date: 20130422
  Receipt Date: 20130422
  Transmission Date: 20140414
  Serious: Yes (Other)
  Sender: FDA-Public Use
  Company Number: CA-TEVA-399342USA

PATIENT
  Age: 38 Year
  Sex: Female

DRUGS (2)
  1. VENLAFAXINE [Suspect]
     Dosage: 187.5 MILLIGRAM DAILY; TAKEN FOR LAST 3 YEARS
  2. SEROQUEL [Concomitant]
     Dates: end: 201204

REACTIONS (2)
  - Breast cancer [Unknown]
  - Breast cyst [Unknown]
